FAERS Safety Report 7798095-0 (Version None)
Quarter: 2011Q4

REPORT INFORMATION
  Report Type: 
  Country: None (occurrence: None)
  Receive Date: 20111004
  Receipt Date: 20110919
  Transmission Date: 20120403
  Serious: Yes (Life-Threatening, Hospitalization)
  Sender: FDA-Public Use
  Company Number: 1000022127

PATIENT
  Age: 34 Year
  Sex: Male
  Weight: 79.4 kg

DRUGS (1)
  1. ESCITALOPRAM [Suspect]
     Indication: BURNOUT SYNDROME
     Dosage: 10 MG(10 MG,  1 IN 1 D),ORAL
     Route: 048
     Dates: start: 20101105, end: 20110111

REACTIONS (8)
  - MYDRIASIS [None]
  - ABNORMAL DREAMS [None]
  - TRISMUS [None]
  - EPILEPSY [None]
  - MUSCLE RIGIDITY [None]
  - ANXIETY [None]
  - AGGRESSION [None]
  - DYSPNOEA [None]
